FAERS Safety Report 16311881 (Version 1)
Quarter: 2019Q2

REPORT INFORMATION
  Report Type: Report from Study
  Country: None (occurrence: US)
  Receive Date: 20190514
  Receipt Date: 20190514
  Transmission Date: 20190711
  Serious: Yes (Hospitalization, Other)
  Sender: FDA-Public Use
  Company Number: US-ABBVIE-18K-163-2264656-00

PATIENT
  Age: 66 Year
  Sex: Female
  Weight: 95.34 kg

DRUGS (1)
  1. HUMIRA [Suspect]
     Active Substance: ADALIMUMAB
     Indication: RHEUMATOID ARTHRITIS
     Route: 058

REACTIONS (12)
  - Bone formation increased [Unknown]
  - Haemorrhage [Unknown]
  - Gout [Unknown]
  - Localised infection [Unknown]
  - Enterococcal infection [Unknown]
  - Femur fracture [Unknown]
  - Femur fracture [Recovered/Resolved]
  - Blood count abnormal [Unknown]
  - Hip fracture [Unknown]
  - Fall [Unknown]
  - Osteomyelitis [Unknown]
  - Adverse drug reaction [Unknown]

NARRATIVE: CASE EVENT DATE: 201712
